FAERS Safety Report 9395001 (Version 3)
Quarter: 2013Q3

REPORT INFORMATION
  Report Type: Spontaneous
  Country: US (occurrence: US)
  Receive Date: 20130711
  Receipt Date: 20130828
  Transmission Date: 20140515
  Serious: Yes (Other)
  Sender: FDA-Public Use
  Company Number: US-PFIZER INC-2013200217

PATIENT
  Age: 56 Year
  Sex: Female
  Weight: 72.1 kg

DRUGS (6)
  1. GENOTROPIN MQ [Suspect]
     Indication: HYPOPITUITARISM
     Dosage: 0.2 MG, 1X/DAY
     Dates: start: 2001
  2. GENOTROPIN MQ [Suspect]
     Dosage: UNK
  3. GENOTROPIN MQ [Suspect]
     Dosage: UNK
  4. GENOTROPIN MQ [Suspect]
     Dosage: UNK
  5. GENOTROPIN MQ [Suspect]
     Dosage: UNK
  6. GENOTROPIN MQ [Suspect]
     Dosage: UNK

REACTIONS (1)
  - Intracranial aneurysm [Unknown]
